FAERS Safety Report 6809284-3 (Version None)
Quarter: 2010Q2

REPORT INFORMATION
  Report Type: 
  Country: None (occurrence: None)
  Receive Date: 20100630
  Receipt Date: 20100617
  Transmission Date: 20101027
  Serious: No
  Sender: FDA-Public Use
  Company Number: US-B.I. PHARMACEUTICALS,INC./RIDGEFIELD-2010-BP-05721PF

PATIENT
  Sex: Female

DRUGS (14)
  1. SPIRIVA [Suspect]
     Indication: CHRONIC OBSTRUCTIVE PULMONARY DISEASE
     Dosage: 18 MCG
  2. CITALOPRAM [Concomitant]
  3. OMEPRAZOLE [Concomitant]
  4. KLOR-CON [Concomitant]
  5. TRAZODONE HYDROCHLORIDE [Concomitant]
  6. WARFARIN [Concomitant]
  7. ALENDRONATE SODIUM [Concomitant]
  8. LIPITOR [Concomitant]
  9. AMLODIPINE BESYLATE [Concomitant]
  10. FUROSEMIDE [Concomitant]
  11. ZOLPIDEM TARTRATE [Concomitant]
  12. ALBUTEROL [Concomitant]
  13. FORADIL [Concomitant]
  14. OXYGEN [Concomitant]

REACTIONS (1)
  - OXYGEN SATURATION DECREASED [None]
